FAERS Safety Report 25733682 (Version 1)
Quarter: 2025Q3

REPORT INFORMATION
  Report Type: Report from Study
  Country: US (occurrence: US)
  Receive Date: 20250828
  Receipt Date: 20250828
  Transmission Date: 20251021
  Serious: Yes (Life-Threatening)
  Sender: ROCHE
  Company Number: US-ROCHE-10000373611

PATIENT
  Age: 65 Year
  Sex: Male

DRUGS (4)
  1. ACTEMRA [Suspect]
     Active Substance: TOCILIZUMAB
     Indication: Rheumatoid arthritis
     Route: 042
  2. HYDROXYCHLOROQUINE [Concomitant]
     Active Substance: HYDROXYCHLOROQUINE
  3. FOLIC ACID [Concomitant]
     Active Substance: FOLIC ACID
  4. OXYCODONE [Concomitant]
     Active Substance: OXYCODONE

REACTIONS (1)
  - Neoplasm malignant [Unknown]
